FAERS Safety Report 4968280-1 (Version None)
Quarter: 2006Q2

REPORT INFORMATION
  Report Type: 
  Country: None (occurrence: None)
  Receive Date: 20060405
  Receipt Date: 20060328
  Transmission Date: 20061013
  Serious: Yes (Hospitalization)
  Sender: FDA-Public Use
  Company Number: 2006034922

PATIENT
  Age: 78 Year
  Sex: Female

DRUGS (5)
  1. CABERGOLINE [Suspect]
     Indication: PARKINSON'S DISEASE
     Dosage: 2 MG, ORAL
     Route: 048
     Dates: end: 20050801
  2. SELEGILINE (SELEGILINE) [Suspect]
     Indication: PARKINSON'S DISEASE
     Dosage: 2.5 MG, ORAL
     Route: 048
     Dates: end: 20050801
  3. LEVODOPA W/BENSERAZIDE/ (BENSERAZIDE, LEVODOPA) [Suspect]
     Indication: PARKINSON'S DISEASE
     Dosage: 150 MG, ORAL
     Route: 048
  4. AMANTADINE HCL [Suspect]
     Indication: PARKINSON'S DISEASE
     Dosage: 150 MG, ORAL
     Route: 048
     Dates: end: 20050801
  5. PRAMIPEXOLE (PRAMIPEXOLE) [Suspect]
     Indication: PARKINSON'S DISEASE
     Dosage: 1.5 MG, ORAL
     Route: 048
     Dates: end: 20050801

REACTIONS (11)
  - AGITATION [None]
  - CONDITION AGGRAVATED [None]
  - EXCITABILITY [None]
  - HALLUCINATION, VISUAL [None]
  - INSOMNIA [None]
  - MOTOR DYSFUNCTION [None]
  - PERSECUTORY DELUSION [None]
  - REFUSAL OF TREATMENT BY PATIENT [None]
  - SCREAMING [None]
  - TREATMENT NONCOMPLIANCE [None]
  - VOMITING [None]
